FAERS Safety Report 7714628-4 (Version None)
Quarter: 2011Q3

REPORT INFORMATION
  Report Type: 
  Country: None (occurrence: None)
  Receive Date: 20110829
  Receipt Date: 20110823
  Transmission Date: 20111222
  Serious: Yes (Other)
  Sender: FDA-Public Use
  Company Number: US-PFIZER INC-2011155772

PATIENT
  Sex: Female

DRUGS (1)
  1. SUTENT [Suspect]
     Indication: RENAL CANCER METASTATIC
     Dosage: 50 MG, 1X/DAY
     Route: 048
     Dates: start: 20110501, end: 20110501

REACTIONS (4)
  - PANCYTOPENIA [None]
  - THROMBOCYTOPENIA [None]
  - MUCOSAL INFLAMMATION [None]
  - DECREASED APPETITE [None]
